FAERS Safety Report 10238765 (Version 2)
Quarter: 2014Q2

REPORT INFORMATION
  Report Type: Spontaneous
  Country: JP (occurrence: JP)
  Receive Date: 20140616
  Receipt Date: 20140626
  Transmission Date: 20141212
  Serious: Yes (Other)
  Sender: FDA-Public Use
  Company Number: JP-ELI_LILLY_AND_COMPANY-JP201406001933

PATIENT
  Age: 34 Month
  Sex: Male

DRUGS (1)
  1. SOMATROPIN [Suspect]
     Indication: FAILURE TO THRIVE

REACTIONS (1)
  - Hepatoblastoma [Recovering/Resolving]
